FAERS Safety Report 10009472 (Version 2)
Quarter: 2014Q1

REPORT INFORMATION
  Report Type: Spontaneous
  Country: US (occurrence: US)
  Receive Date: 20140313
  Receipt Date: 20140313
  Transmission Date: 20141002
  Serious: No
  Sender: FDA-Public Use
  Company Number: US-INCYTE CORPORATION-2012IN001281

PATIENT
  Age: 67 Year
  Sex: Female
  Weight: 52.15 kg

DRUGS (5)
  1. JAKAFI [Suspect]
     Indication: MYELOFIBROSIS
     Dosage: 15 MG, BID
     Route: 048
     Dates: start: 20111227
  2. CALCIUM [Concomitant]
     Dosage: 600 MG, BID
     Route: 048
  3. PANTOPRAZOLE SODIUM [Concomitant]
     Dosage: 20 MG, QD
     Route: 048
  4. POTASSIUM CHLORIDE [Concomitant]
     Dosage: 10 MEQ, BID
     Route: 048
  5. LEVOTHROID [Concomitant]
     Dosage: 75 MCG, QD
     Route: 048

REACTIONS (7)
  - Ligament sprain [Unknown]
  - Fall [Recovered/Resolved]
  - Arthralgia [Not Recovered/Not Resolved]
  - Back pain [Not Recovered/Not Resolved]
  - Hypothyroidism [Not Recovered/Not Resolved]
  - Hypertension [Not Recovered/Not Resolved]
  - Anaemia [Not Recovered/Not Resolved]
